FAERS Safety Report 12589594 (Version 1)
Quarter: 2016Q3

REPORT INFORMATION
  Report Type: Report from Study
  Country: AU (occurrence: AU)
  Receive Date: 20160725
  Receipt Date: 20160725
  Transmission Date: 20161109
  Serious: Yes (Other)
  Sender: FDA-Public Use
  Company Number: AU-GILEAD-2016-0224948

PATIENT
  Age: 56 Year
  Sex: Male

DRUGS (1)
  1. ADEFOVIR DIPIVOXIL. [Suspect]
     Active Substance: ADEFOVIR DIPIVOXIL
     Indication: HEPATITIS B
     Dosage: UNK
     Route: 065
     Dates: end: 2012

REACTIONS (5)
  - Osteomalacia [Unknown]
  - Renal tubular acidosis [Unknown]
  - Congenital aplastic anaemia [Unknown]
  - Renal impairment [Unknown]
  - Fracture [Unknown]

NARRATIVE: CASE EVENT DATE: 2012
